FAERS Safety Report 4728604-7 (Version None)
Quarter: 2005Q3

REPORT INFORMATION
  Report Type: 
  Country: None (occurrence: None)
  Receive Date: 20050721
  Receipt Date: 20050504
  Transmission Date: 20060218
  Serious: No
  Sender: FDA-Public Use
  Company Number: 2005SP000581

PATIENT
  Age: 57 Year
  Sex: Male
  Weight: 95.2554 kg

DRUGS (1)
  1. LUNESTA (3 MG) [Suspect]
     Dosage: 3 MG; HS; ORAL
     Route: 047
     Dates: start: 20050420, end: 20050501

REACTIONS (2)
  - DRUG INEFFECTIVE [None]
  - INSOMNIA [None]
